FAERS Safety Report 17588661 (Version 1)
Quarter: 2020Q1

REPORT INFORMATION
  Report Type: Report from Study
  Country: JP (occurrence: JP)
  Receive Date: 20200327
  Receipt Date: 20200327
  Transmission Date: 20200409
  Serious: Yes (Hospitalization, Other)
  Sender: FDA-Public Use
  Company Number: JP-RECORDATI RARE DISEASES-2082053

PATIENT
  Age: 77 Year
  Sex: Female
  Weight: 45 kg

DRUGS (8)
  1. DAIPHEN [Concomitant]
     Active Substance: SULFAMETHOXAZOLE\TRIMETHOPRIM
     Dates: end: 20190620
  2. METOPIRONE [Concomitant]
     Active Substance: METYRAPONE
  3. LANSOPRAZOLE. [Concomitant]
     Active Substance: LANSOPRAZOLE
  4. INSULIN GLARGINE [Concomitant]
     Active Substance: INSULIN GLARGINE
  5. DONEPEZIL HYDROCHLORIDE. [Concomitant]
     Active Substance: DONEPEZIL HYDROCHLORIDE
  6. AMITIZA [Concomitant]
     Active Substance: LUBIPROSTONE
  7. SIGNIFOR [Suspect]
     Active Substance: PASIREOTIDE DIASPARTATE
     Indication: PITUITARY-DEPENDENT CUSHING^S SYNDROME
     Route: 030
     Dates: start: 20190621, end: 20190621
  8. BELSOMRA [Concomitant]
     Active Substance: SUVOREXANT

REACTIONS (3)
  - Cholangitis [Recovered/Resolved]
  - Hepatic enzyme increased [Recovering/Resolving]
  - Liver disorder [Unknown]

NARRATIVE: CASE EVENT DATE: 20190717
